FAERS Safety Report 4369799-7 (Version None)
Quarter: 2004Q2

REPORT INFORMATION
  Report Type: 
  Country: None (occurrence: None)
  Receive Date: 20040525
  Receipt Date: 20040512
  Transmission Date: 20050107
  Serious: Yes (Death)
  Sender: FDA-Public Use
  Company Number: SE-JNJFOC-20040502677

PATIENT
  Age: 75 Year
  Sex: Male

DRUGS (2)
  1. INFLIXIMAB            (INFLIXIMAB, RECOMBINANT) [Suspect]
     Indication: CROHN'S DISEASE
     Dosage: 0, 2, AND 6 WEEKS (TOTAL TO THREE INFUSIONS)
  2. GLUCOCORTICOSTEROIDS [Concomitant]

REACTIONS (2)
  - BRONCHITIS [None]
  - SEPSIS [None]
